FAERS Safety Report 15369952 (Version 1)
Quarter: 2018Q3

REPORT INFORMATION
  Report Type: Spontaneous
  Country: US (occurrence: US)
  Receive Date: 20180904
  Receipt Date: 20180904
  Transmission Date: 20181010
  Serious: Yes (Hospitalization)
  Sender: FDA-Public Use
  Company Number: None

PATIENT
  Age: 57 Year
  Sex: Female
  Weight: 51.8 kg

DRUGS (1)
  1. CISPLATIN. [Suspect]
     Active Substance: CISPLATIN
     Dates: end: 20180814

REACTIONS (10)
  - Nausea [None]
  - Diarrhoea [None]
  - Incontinence [None]
  - Urinary tract infection [None]
  - White blood cell count decreased [None]
  - Platelet count decreased [None]
  - Red blood cell count decreased [None]
  - Vomiting [None]
  - Asthenia [None]
  - Febrile neutropenia [None]

NARRATIVE: CASE EVENT DATE: 20180821
